FAERS Safety Report 24644245 (Version 1)
Quarter: 2024Q4

REPORT INFORMATION
  Report Type: Report from Study
  Country: US (occurrence: US)
  Receive Date: 20241120
  Receipt Date: 20241120
  Transmission Date: 20250114
  Serious: Yes (Other)
  Sender: ABBVIE
  Company Number: US-ABBVIE-6005475

PATIENT
  Sex: Male

DRUGS (1)
  1. IMBRUVICA [Suspect]
     Active Substance: IBRUTINIB
     Indication: Product used for unknown indication
     Route: 048
     Dates: start: 2017

REACTIONS (8)
  - Spleen disorder [Unknown]
  - Constipation [Unknown]
  - Adverse drug reaction [Unknown]
  - Mass [Unknown]
  - Diarrhoea [Unknown]
  - Arthropathy [Unknown]
  - Malaise [Unknown]
  - Nausea [Unknown]
